FAERS Safety Report 13982094 (Version 1)
Quarter: 2017Q3

REPORT INFORMATION
  Report Type: Spontaneous
  Country: RU (occurrence: RU)
  Receive Date: 20170918
  Receipt Date: 20170918
  Transmission Date: 20171128
  Serious: Yes (Hospitalization)
  Sender: FDA-Public Use
  Company Number: RU-SYNTHON BV-NL01PV17_44829

PATIENT
  Age: 74 Year
  Sex: Male

DRUGS (2)
  1. PROFLOSIN [Suspect]
     Active Substance: TAMSULOSIN HYDROCHLORIDE
     Indication: DYSURIA
     Dosage: 0.4 MG, QD
     Route: 048
  2. PROFLOSIN [Suspect]
     Active Substance: TAMSULOSIN HYDROCHLORIDE
     Indication: BENIGN PROSTATIC HYPERPLASIA

REACTIONS (3)
  - Arrhythmia [Recovering/Resolving]
  - Blood pressure decreased [Recovering/Resolving]
  - Syncope [Recovering/Resolving]
